FAERS Safety Report 5688616-6 (Version None)
Quarter: 2008Q1

REPORT INFORMATION
  Report Type: 
  Country: None (occurrence: None)
  Receive Date: 20080331
  Receipt Date: 20080324
  Transmission Date: 20080703
  Serious: Yes (Death)
  Sender: FDA-Public Use
  Company Number: PHHY2008BR03732

PATIENT
  Age: 75 Year
  Sex: Male

DRUGS (4)
  1. RITALIN LA [Suspect]
     Dosage: 30MG
     Route: 048
  2. MIRTAZAPINE [Concomitant]
     Dosage: 45MG
  3. DIAZEPAM [Concomitant]
     Dosage: 10MG
  4. TESTOSTERONE PROPIONATE [Concomitant]

REACTIONS (1)
  - COMPLETED SUICIDE [None]
